FAERS Safety Report 7481868-1 (Version None)
Quarter: 2011Q2

REPORT INFORMATION
  Report Type: 
  Country: None (occurrence: None)
  Receive Date: 20110516
  Receipt Date: 20101227
  Transmission Date: 20111010
  Serious: Yes (Hospitalization, Other)
  Sender: FDA-Public Use
  Company Number: US-BAYER-201023241NA

PATIENT
  Age: 18 Year
  Sex: Female
  Weight: 77.09 kg

DRUGS (6)
  1. ALBUTEROL [Concomitant]
  2. IBUPROFEN [Concomitant]
  3. YASMIN [Suspect]
     Indication: DYSMENORRHOEA
     Route: 048
  4. DROSPIRENONE AND ETHINYL ESTRADIOL [Suspect]
     Indication: DYSMENORRHOEA
     Route: 048
  5. EXCEDRIN (MIGRAINE) [Concomitant]
  6. YAZ [Suspect]
     Indication: DYSMENORRHOEA
     Dosage: UNK
     Route: 048
     Dates: start: 20060101, end: 20080101

REACTIONS (7)
  - INJURY [None]
  - CHOLECYSTITIS ACUTE [None]
  - CHOLECYSTITIS CHRONIC [None]
  - APPENDICITIS [None]
  - GALLBLADDER DISORDER [None]
  - DYSPEPSIA [None]
  - PAIN [None]
